FAERS Safety Report 13582529 (Version 1)
Quarter: 2017Q2

REPORT INFORMATION
  Report Type: Report from Study
  Country: AU (occurrence: AU)
  Receive Date: 20170525
  Receipt Date: 20170525
  Transmission Date: 20170830
  Serious: Yes (Death)
  Sender: FDA-Public Use
  Company Number: AU-TEVA-770973ROM

PATIENT
  Age: 43 Year
  Sex: Female

DRUGS (3)
  1. TEMAZEPAM. [Suspect]
     Active Substance: TEMAZEPAM
     Indication: OVERDOSE
     Dosage: 500MG
     Route: 048
  2. FLUOXETINE [Suspect]
     Active Substance: FLUOXETINE HYDROCHLORIDE
     Indication: OVERDOSE
     Dosage: UNKNOWN AMOUNT
     Route: 048
  3. LAMOTRIGINE. [Suspect]
     Active Substance: LAMOTRIGINE
     Indication: OVERDOSE
     Dosage: 11G
     Route: 048

REACTIONS (6)
  - Hyperthermia [Fatal]
  - Cardiac arrest [Fatal]
  - Intentional overdose [Fatal]
  - Seizure [Fatal]
  - Toxicity to various agents [Fatal]
  - Multiple organ dysfunction syndrome [Fatal]
